FAERS Safety Report 5304615-8 (Version None)
Quarter: 2007Q2

REPORT INFORMATION
  Report Type: 
  Country: None (occurrence: None)
  Receive Date: 20070423
  Receipt Date: 20070420
  Transmission Date: 20071010
  Serious: Yes (Other)
  Sender: FDA-Public Use
  Company Number: NL-GLAXOSMITHKLINE-B0465305A

PATIENT
  Age: 81 Year
  Sex: Female
  Weight: 50 kg

DRUGS (6)
  1. AUGMENTIN '125' [Suspect]
     Indication: CYSTITIS
     Route: 042
     Dates: start: 20070312, end: 20070316
  2. FUROSEMIDE [Concomitant]
     Dosage: 40MG PER DAY
     Route: 048
     Dates: start: 20060101
  3. TEMAZEPAM [Concomitant]
     Dosage: 10MG PER DAY
     Route: 048
     Dates: start: 20050101
  4. TELFAST [Concomitant]
     Dosage: 120MG PER DAY
     Route: 048
     Dates: start: 20060101
  5. PANTOZOL [Concomitant]
     Dosage: 40MG PER DAY
     Route: 048
     Dates: start: 20050101
  6. CROMOGLICINE ACID [Concomitant]
     Dosage: 20MGML THREE TIMES PER DAY
     Route: 047
     Dates: start: 20030101

REACTIONS (11)
  - ASPARTATE AMINOTRANSFERASE INCREASED [None]
  - BLOOD ALKALINE PHOSPHATASE INCREASED [None]
  - COUGH [None]
  - DIARRHOEA [None]
  - GAMMA-GLUTAMYLTRANSFERASE INCREASED [None]
  - JAUNDICE [None]
  - NAUSEA [None]
  - ORAL INTAKE REDUCED [None]
  - PYREXIA [None]
  - SOMNOLENCE [None]
  - VOMITING [None]
